FAERS Safety Report 9216944 (Version 2)
Quarter: 2013Q2

REPORT INFORMATION
  Report Type: Report from Study
  Country: US (occurrence: US)
  Receive Date: 20130408
  Receipt Date: 20130418
  Transmission Date: 20140414
  Serious: Yes (Hospitalization, Other)
  Sender: FDA-Public Use
  Company Number: US-ABBOTT-13P-163-1070779-00

PATIENT
  Age: 74 Year
  Sex: Female

DRUGS (15)
  1. HUMIRA [Suspect]
     Indication: CROHN^S DISEASE
     Dosage: 160 MG AND 80 MG LOADING DOSES
     Dates: start: 201211, end: 201211
  2. VIT B6 [Concomitant]
     Indication: PRODUCT USED FOR UNKNOWN INDICATION
  3. VIT C [Concomitant]
     Indication: PRODUCT USED FOR UNKNOWN INDICATION
  4. PREDNISONE [Concomitant]
     Indication: PRODUCT USED FOR UNKNOWN INDICATION
  5. LASIX [Concomitant]
     Indication: FLUID RETENTION
  6. METOPROLOL [Concomitant]
     Indication: CARDIAC DISORDER
  7. LISINOPRIL [Concomitant]
     Indication: HYPERTENSION
  8. MORPHINE [Concomitant]
     Indication: PAIN
  9. DIAZEPAM [Concomitant]
     Indication: ANXIETY
  10. MULTIVITAMIN [Concomitant]
     Indication: PRODUCT USED FOR UNKNOWN INDICATION
  11. PROBIOTIC [Concomitant]
     Indication: PRODUCT USED FOR UNKNOWN INDICATION
  12. VITAMIN B12 [Concomitant]
     Indication: PRODUCT USED FOR UNKNOWN INDICATION
  13. MAGNESIUM [Concomitant]
     Indication: PRODUCT USED FOR UNKNOWN INDICATION
  14. POTASSIUM [Concomitant]
     Indication: PRODUCT USED FOR UNKNOWN INDICATION
  15. WARFARIN [Concomitant]
     Indication: PRODUCT USED FOR UNKNOWN INDICATION

REACTIONS (13)
  - Crohn^s disease [Not Recovered/Not Resolved]
  - Intestinal obstruction [Not Recovered/Not Resolved]
  - Vomiting [Not Recovered/Not Resolved]
  - Diarrhoea [Not Recovered/Not Resolved]
  - Nausea [Not Recovered/Not Resolved]
  - Abdominal pain [Not Recovered/Not Resolved]
  - Electrolyte imbalance [Recovered/Resolved]
  - Heart rate increased [Recovered/Resolved]
  - Arrhythmia [Recovered/Resolved]
  - Anaemia [Unknown]
  - Prothrombin time abnormal [Unknown]
  - Nausea [Recovered/Resolved]
  - Vomiting [Recovered/Resolved]
